FAERS Safety Report 13729990 (Version 1)
Quarter: 2017Q3

REPORT INFORMATION
  Report Type: Spontaneous
  Country: US (occurrence: US)
  Receive Date: 20170707
  Receipt Date: 20170707
  Transmission Date: 20171127
  Serious: Yes (Hospitalization)
  Sender: FDA-Public Use
  Company Number: US-JNJFOC-20170507444

PATIENT
  Sex: Male

DRUGS (3)
  1. XARELTO [Suspect]
     Active Substance: RIVAROXABAN
     Indication: ARTERIAL THROMBOSIS
     Route: 048
     Dates: start: 20160624
  2. PLAVIX [Suspect]
     Active Substance: CLOPIDOGREL BISULFATE
     Indication: PERIPHERAL ARTERIAL OCCLUSIVE DISEASE
     Route: 065
     Dates: end: 20161230
  3. XARELTO [Suspect]
     Active Substance: RIVAROXABAN
     Indication: ARTERIAL THROMBOSIS
     Route: 048
     Dates: start: 201607, end: 20161230

REACTIONS (2)
  - Epistaxis [Unknown]
  - Gastrointestinal haemorrhage [Recovering/Resolving]

NARRATIVE: CASE EVENT DATE: 2016
